FAERS Safety Report 9838106 (Version 1)
Quarter: 2014Q1

REPORT INFORMATION
  Report Type: Spontaneous
  Country: ES (occurrence: ES)
  Receive Date: 20140123
  Receipt Date: 20140123
  Transmission Date: 20141002
  Serious: Yes (Hospitalization)
  Sender: FDA-Public Use
  Company Number: ES-ACTAVIS-2014-00377

PATIENT
  Age: 74 Year
  Sex: Male
  Weight: 60 kg

DRUGS (1)
  1. DOCETAXEL ACTAVIS [Suspect]
     Indication: PROSTATE CANCER
     Dosage: 128 MG, CYCLICAL; EVERY 21 DAYS
     Route: 042
     Dates: start: 20131212, end: 20131220

REACTIONS (2)
  - Superinfection [Recovered/Resolved]
  - Toxic skin eruption [Recovered/Resolved]
